FAERS Safety Report 4504819-8 (Version None)
Quarter: 2004Q3

REPORT INFORMATION
  Report Type: 
  Country: None (occurrence: None)
  Receive Date: 20040927
  Receipt Date: 20040708
  Transmission Date: 20050211
  Serious: No
  Sender: FDA-Public Use
  Company Number: USA040772110

PATIENT
  Age: 59 Year
  Sex: Male
  Weight: 91 kg

DRUGS (6)
  1. STRATTERA [Suspect]
     Indication: EXCITABILITY
     Dosage: 80 MG/1 DAY
     Dates: start: 20040529
  2. DEPAKOTE [Concomitant]
  3. ATENOLOL [Concomitant]
  4. CHLOR-TRIMETON [Concomitant]
  5. MULTI-VITAMIN [Concomitant]
  6. ASPIRIN [Concomitant]

REACTIONS (3)
  - ERECTILE DYSFUNCTION [None]
  - FEELING OF RELAXATION [None]
  - NASOPHARYNGITIS [None]
